FAERS Safety Report 7414238-2 (Version None)
Quarter: 2011Q2

REPORT INFORMATION
  Report Type: 
  Country: None (occurrence: None)
  Receive Date: 20110414
  Receipt Date: 20110410
  Transmission Date: 20111010
  Serious: No
  Sender: FDA-Public Use
  Company Number: US-TEVA-276152USA

PATIENT
  Sex: Female
  Weight: 49.94 kg

DRUGS (2)
  1. METHSCOPOLAMINE [Concomitant]
     Indication: ANXIETY
  2. PLAN B ONE-STEP [Suspect]
     Indication: POST COITAL CONTRACEPTION
     Dosage: 1.5 MILLIGRAM;
     Route: 048
     Dates: start: 20110403, end: 20110403

REACTIONS (5)
  - DIZZINESS [None]
  - HOT FLUSH [None]
  - FEELING COLD [None]
  - HEADACHE [None]
  - VOMITING [None]
